FAERS Safety Report 7270166-7 (Version None)
Quarter: 2011Q1

REPORT INFORMATION
  Report Type: 
  Country: None (occurrence: None)
  Receive Date: 20110202
  Receipt Date: 20110124
  Transmission Date: 20110831
  Serious: Yes (Death)
  Sender: FDA-Public Use
  Company Number: US-ROCHE-748805

PATIENT
  Sex: Female

DRUGS (4)
  1. CISPLATIN [Suspect]
     Indication: METASTATIC GASTRIC CANCER
     Dosage: DOSE, ROUTE, FORM AND FREQUENCY NOT PROVIDED.
     Route: 065
     Dates: start: 20100301, end: 20100401
  2. 5-FU [Suspect]
     Indication: METASTATIC GASTRIC CANCER
     Dosage: DOSE, ROUTE, FORM AND FREQUENCY NOT PROVIDED.
     Route: 065
     Dates: start: 20100301
  3. AVASTIN [Suspect]
     Indication: METASTATIC GASTRIC CANCER
     Dosage: DOSE, ROUTE, FORM AND FREQUENCY NOT PROVIDED.
     Route: 065
     Dates: start: 20100301, end: 20100401
  4. IRINOTECAN HCL [Suspect]
     Indication: METASTATIC GASTRIC CANCER
     Dosage: DOSE, ROUTE, FORM AND FREQUENCY NOT PROVIDED.
     Route: 065
     Dates: start: 20100301

REACTIONS (5)
  - PANCYTOPENIA [None]
  - DIZZINESS [None]
  - HYPOTENSION [None]
  - ANAEMIA [None]
  - PANCREATIC CARCINOMA METASTATIC [None]
